FAERS Safety Report 4314387-1 (Version None)
Quarter: 2004Q1

REPORT INFORMATION
  Report Type: 
  Country: None (occurrence: None)
  Receive Date: 20040308
  Receipt Date: 20040228
  Transmission Date: 20041129
  Serious: Yes (Hospitalization, Other)
  Sender: FDA-Public Use
  Company Number: 2004-03-0062

PATIENT
  Sex: Female

DRUGS (1)
  1. ELOCON [Suspect]
     Indication: RASH
     Dosage: 0.1% TOP-DERM
     Route: 061

REACTIONS (7)
  - ADRENAL DISORDER [None]
  - AUTOIMMUNE THYROIDITIS [None]
  - CARDIAC DISORDER [None]
  - CONDITION AGGRAVATED [None]
  - MEDICATION ERROR [None]
  - RASH [None]
  - THYROID DISORDER [None]
